FAERS Safety Report 20446161 (Version 1)
Quarter: 2022Q1

REPORT INFORMATION
  Report Type: Spontaneous
  Country: US (occurrence: US)
  Receive Date: 20220208
  Receipt Date: 20220208
  Transmission Date: 20220423
  Serious: Yes (Hospitalization)
  Sender: FDA-Public Use
  Company Number: US-PFIZER INC-202100985579

PATIENT
  Age: 91 Year
  Sex: Female

DRUGS (1)
  1. IBRANCE [Suspect]
     Active Substance: PALBOCICLIB
     Indication: Breast mass
     Dosage: 100 MG

REACTIONS (5)
  - Fall [Recovered/Resolved]
  - Product dose omission issue [Unknown]
  - Hypokinesia [Unknown]
  - Peripheral swelling [Recovered/Resolved]
  - Contusion [Unknown]
